FAERS Safety Report 6215955-2 (Version None)
Quarter: 2009Q2

REPORT INFORMATION
  Report Type: 
  Country: None (occurrence: None)
  Receive Date: 20090605
  Receipt Date: 20090519
  Transmission Date: 20091009
  Serious: Yes (Other)
  Sender: FDA-Public Use
  Company Number: CA-JNJFOC-20090506800

PATIENT
  Age: 47 Year
  Sex: Female

DRUGS (4)
  1. LEVAQUIN [Suspect]
     Indication: DRUG USE FOR UNKNOWN INDICATION
     Route: 065
  2. REMICADE [Concomitant]
     Indication: RHEUMATOID ARTHRITIS
     Route: 065
  3. TYLENOL W/ CODEINE NO. 3 [Concomitant]
     Dosage: 3 PRN
     Route: 065
  4. PREDNISONE [Concomitant]
     Route: 065

REACTIONS (4)
  - INSOMNIA [None]
  - PAIN IN EXTREMITY [None]
  - SKIN DISCOLOURATION [None]
  - URTICARIA [None]
